FAERS Safety Report 8822408 (Version 1)
Quarter: 2012Q4

REPORT INFORMATION
  Report Type: 
  Country: US (occurrence: US)
  Receive Date: 20121003
  Receipt Date: 20121003
  Transmission Date: 20130627
  Serious: No
  Sender: FDA-Public Use
  Company Number: US-VERTEX PHARMACEUTICAL INC.-2012-020902

PATIENT
  Age: 64 None
  Sex: Male
  Weight: 83 kg

DRUGS (4)
  1. INCIVEK [Suspect]
     Indication: HEPATITIS C
     Dosage: 750 mg, tid
     Route: 048
     Dates: start: 20120629
  2. COPEGUS [Suspect]
     Indication: HEPATITIS C
     Dosage: 5 DF, bid
     Dates: start: 20120629
  3. COPEGUS [Suspect]
     Dosage: 4 DF, qd
     Route: 048
  4. PEGASYS [Suspect]
     Dosage: UNK
     Dates: start: 20120629

REACTIONS (5)
  - Weight decreased [Not Recovered/Not Resolved]
  - Blood creatinine increased [Unknown]
  - Asthenia [Not Recovered/Not Resolved]
  - Lethargy [Not Recovered/Not Resolved]
  - Rash [Recovered/Resolved]
